FAERS Safety Report 5689129-8 (Version None)
Quarter: 2008Q1

REPORT INFORMATION
  Report Type: 
  Country: None (occurrence: None)
  Receive Date: 20080331
  Receipt Date: 20080321
  Transmission Date: 20080703
  Serious: Yes (Hospitalization)
  Sender: FDA-Public Use
  Company Number: US-MERCK-0803USA03681

PATIENT
  Age: 72 Year
  Sex: Male

DRUGS (1)
  1. JANUMET [Suspect]
     Indication: BLOOD GLUCOSE
     Route: 048
     Dates: start: 20071201, end: 20080101

REACTIONS (2)
  - EYE SWELLING [None]
  - LIP SWELLING [None]
